FAERS Safety Report 11159462 (Version 1)
Quarter: 2015Q2

REPORT INFORMATION
  Report Type: Spontaneous
  Country: US (occurrence: US)
  Receive Date: 20150603
  Receipt Date: 20150603
  Transmission Date: 20150821
  Serious: Yes (Death, Other)
  Sender: FDA-Public Use
  Company Number: US-GLAXOSMITHKLINE-US2015075751

PATIENT
  Age: 87 Year
  Sex: Male

DRUGS (1)
  1. ZOFRAN [Suspect]
     Active Substance: ONDANSETRON HYDROCHLORIDE
     Indication: NAUSEA
     Dosage: UNK
     Route: 042
     Dates: start: 20150522, end: 20150522

REACTIONS (7)
  - Death [Fatal]
  - Tongue biting [Unknown]
  - Myocardial infarction [Unknown]
  - Confusional state [Unknown]
  - Aphagia [Unknown]
  - Dysphonia [Unknown]
  - Swollen tongue [Unknown]

NARRATIVE: CASE EVENT DATE: 20150522
